FAERS Safety Report 19668652 (Version 1)
Quarter: 2021Q3

REPORT INFORMATION
  Report Type: Spontaneous
  Country: FR (occurrence: FR)
  Receive Date: 20210806
  Receipt Date: 20210806
  Transmission Date: 20211014
  Serious: Yes (Other)
  Sender: FDA-Public Use
  Company Number: FR-MYLANLABS-2021M1048488

PATIENT
  Age: 16 Year
  Sex: Male

DRUGS (1)
  1. TRAMADOL. [Suspect]
     Active Substance: TRAMADOL
     Indication: PRODUCT USED FOR UNKNOWN INDICATION
     Dosage: 1.150 G
     Route: 048
     Dates: start: 20201114

REACTIONS (5)
  - Seizure [Recovered/Resolved]
  - Drug abuse [Recovered/Resolved]
  - Loss of consciousness [Recovered/Resolved]
  - Malaise [Recovered/Resolved]
  - Ligament sprain [Not Recovered/Not Resolved]

NARRATIVE: CASE EVENT DATE: 20201114
